FAERS Safety Report 6288123-6 (Version None)
Quarter: 2009Q3

REPORT INFORMATION
  Report Type: 
  Country: None (occurrence: None)
  Receive Date: 20090729
  Receipt Date: 20090211
  Transmission Date: 20100115
  Serious: No
  Sender: FDA-Public Use
  Company Number: A0768210A

PATIENT
  Age: 63 Year
  Sex: Female

DRUGS (5)
  1. ZANTAC [Suspect]
     Dosage: 150MG PER DAY
     Route: 048
  2. ADVAIR HFA [Concomitant]
     Route: 055
  3. FLONASE [Concomitant]
  4. ALBUTEROL [Concomitant]
  5. SIMVASTATIN [Concomitant]

REACTIONS (1)
  - DRUG DISPENSING ERROR [None]
